FAERS Safety Report 12700813 (Version 4)
Quarter: 2016Q3

REPORT INFORMATION
  Report Type: Spontaneous
  Country: US (occurrence: US)
  Receive Date: 20160830
  Receipt Date: 20160929
  Transmission Date: 20161109
  Serious: Yes (Hospitalization, Other)
  Sender: FDA-Public Use
  Company Number: US-AMGEN-USASP2016113037

PATIENT
  Age: 85 Year
  Sex: Male
  Weight: 77.55 kg

DRUGS (1)
  1. PROCRIT [Suspect]
     Active Substance: ERYTHROPOIETIN
     Indication: NEPHROGENIC ANAEMIA
     Dosage: 40,000 UNITS, WEEKLY
     Route: 058
     Dates: end: 20160819

REACTIONS (8)
  - Haemoglobin decreased [Recovered/Resolved]
  - Aplasia pure red cell [Not Recovered/Not Resolved]
  - Drug ineffective [Unknown]
  - Transferrin abnormal [Unknown]
  - Blood product transfusion dependent [Not Recovered/Not Resolved]
  - Serum ferritin abnormal [Unknown]
  - Blood iron abnormal [Unknown]
  - Iron binding capacity total abnormal [Unknown]

NARRATIVE: CASE EVENT DATE: 2015
